FAERS Safety Report 5220981-6 (Version None)
Quarter: 2007Q1

REPORT INFORMATION
  Report Type: 
  Country: None (occurrence: None)
  Receive Date: 20070123
  Receipt Date: 20070110
  Transmission Date: 20070707
  Serious: Yes (Hospitalization)
  Sender: FDA-Public Use
  Company Number: A-JP2007-13993

PATIENT
  Age: 47 Year
  Sex: Female
  Weight: 53 kg

DRUGS (8)
  1. TRACLEER [Suspect]
     Indication: PULMONARY HYPERTENSION
     Dosage: 31.25 MG, BID, ORAL; 62.5 MG, BID
     Route: 048
     Dates: start: 20060920, end: 20060924
  2. TRACLEER [Suspect]
     Indication: PULMONARY HYPERTENSION
     Dosage: 31.25 MG, BID, ORAL; 62.5 MG, BID
     Route: 048
     Dates: start: 20060925, end: 20061026
  3. TRACLEER [Suspect]
     Indication: PULMONARY HYPERTENSION
     Dosage: 31.25 MG, BID, ORAL; 62.5 MG, BID
     Route: 048
     Dates: start: 20061121, end: 20061124
  4. FERROUS SODIUM CITRATE (FERROUS SODIUM CITRATE) [Concomitant]
  5. EPOPROSTENOL SODIUM [Concomitant]
  6. BERAPROST SODIUM (BERAPROST SODIUM) [Concomitant]
  7. WAFARIN POTASSIUM (WARFARIN POTASSIUM) [Concomitant]
  8. OXYGEN (OXYGEN) [Concomitant]

REACTIONS (10)
  - ALANINE AMINOTRANSFERASE INCREASED [None]
  - ANAEMIA [None]
  - ASPARTATE AMINOTRANSFERASE INCREASED [None]
  - BLOOD ALKALINE PHOSPHATASE INCREASED [None]
  - CONDITION AGGRAVATED [None]
  - DISEASE PROGRESSION [None]
  - HEPATIC CONGESTION [None]
  - HEPATIC FUNCTION ABNORMAL [None]
  - PULMONARY HYPERTENSION [None]
  - RIGHT VENTRICULAR FAILURE [None]
